FAERS Safety Report 15394051 (Version 3)
Quarter: 2020Q3

REPORT INFORMATION
  Report Type: Spontaneous
  Country: US (occurrence: US)
  Receive Date: 20180917
  Receipt Date: 20200907
  Transmission Date: 20201102
  Serious: No
  Sender: FDA-Public Use
  Company Number: US-BIOGEN-2018BI00518987

PATIENT
  Age: 60 Year
  Sex: Female

DRUGS (5)
  1. TECFIDERA [Suspect]
     Active Substance: DIMETHYL FUMARATE
     Indication: MULTIPLE SCLEROSIS
     Dosage: STARTING DOSE
     Route: 050
     Dates: start: 20180126, end: 20180201
  2. ASPIRIN. [Concomitant]
     Active Substance: ASPIRIN
     Indication: ABDOMINAL DISCOMFORT
     Dosage: 1 HR BEFORE DOSE
     Route: 050
  3. LEVOTHYROXIN [Concomitant]
     Active Substance: LEVOTHYROXINE
     Route: 065
  4. TECFIDERA [Suspect]
     Active Substance: DIMETHYL FUMARATE
     Route: 050
     Dates: start: 20200218
  5. TECFIDERA [Suspect]
     Active Substance: DIMETHYL FUMARATE
     Route: 050
     Dates: start: 20180202

REACTIONS (5)
  - Rhinorrhoea [Recovered/Resolved]
  - Abdominal discomfort [Recovered/Resolved]
  - Flushing [Unknown]
  - Dacryostenosis acquired [Unknown]
  - Photopsia [Recovered/Resolved]

NARRATIVE: CASE EVENT DATE: 20180126
